FAERS Safety Report 21642709 (Version 8)
Quarter: 2024Q3

REPORT INFORMATION
  Report Type: Report from Study
  Country: PA (occurrence: PA)
  Receive Date: 20221125
  Receipt Date: 20240806
  Transmission Date: 20241017
  Serious: Yes (Hospitalization, Other)
  Sender: BIOGEN
  Company Number: PA-BIOGEN-2022BI01166110

PATIENT
  Sex: Female
  Weight: 47.2 kg

DRUGS (10)
  1. AVONEX [Suspect]
     Active Substance: INTERFERON BETA-1A
     Indication: Relapsing multiple sclerosis
     Route: 050
     Dates: start: 20070101
  2. AVONEX [Suspect]
     Active Substance: INTERFERON BETA-1A
     Route: 050
     Dates: start: 20070101
  3. AVONEX [Suspect]
     Active Substance: INTERFERON BETA-1A
     Route: 050
     Dates: start: 200511
  4. AVONEX [Suspect]
     Active Substance: INTERFERON BETA-1A
  5. GABAPENTIN [Concomitant]
     Active Substance: GABAPENTIN
     Indication: Neuralgia
     Dosage: DAILY
     Route: 050
  6. NEURONTIN [Concomitant]
     Active Substance: GABAPENTIN
     Indication: Neuralgia
     Dosage: 1 CAPSULE DAILY
     Route: 050
     Dates: start: 202210
  7. NEURONTIN [Concomitant]
     Active Substance: GABAPENTIN
     Route: 050
     Dates: start: 2008
  8. NEURONTIN [Concomitant]
     Active Substance: GABAPENTIN
     Route: 050
     Dates: start: 2003
  9. COLLAGEN [Concomitant]
     Active Substance: COLLAGEN
     Indication: Musculoskeletal disorder
     Route: 050
     Dates: start: 20240327
  10. FOLIC ACID [Concomitant]
     Active Substance: FOLIC ACID
     Indication: Asthenia
     Route: 050
     Dates: start: 2005

REACTIONS (17)
  - Pseudomeningocele [Unknown]
  - Cerebrospinal fluid leakage [Not Recovered/Not Resolved]
  - Weight decreased [Not Recovered/Not Resolved]
  - Haemoglobin decreased [Not Recovered/Not Resolved]
  - Blood pressure increased [Recovered/Resolved]
  - Brain neoplasm [Unknown]
  - Deafness unilateral [Recovered/Resolved]
  - Schwannoma [Unknown]
  - Balance disorder [Not Recovered/Not Resolved]
  - Oropharyngeal discomfort [Not Recovered/Not Resolved]
  - Tongue discomfort [Not Recovered/Not Resolved]
  - Neuralgia [Not Recovered/Not Resolved]
  - Memory impairment [Recovered/Resolved]
  - Cognitive disorder [Recovered/Resolved]
  - Eye disorder [Unknown]
  - Arrhythmia [Not Recovered/Not Resolved]
  - Dizziness [Not Recovered/Not Resolved]

NARRATIVE: CASE EVENT DATE: 20070101
